FAERS Safety Report 5276585-2 (Version None)
Quarter: 2007Q1

REPORT INFORMATION
  Report Type: 
  Country: None (occurrence: None)
  Receive Date: 20070327
  Receipt Date: 20070323
  Transmission Date: 20070707
  Serious: Yes (Hospitalization)
  Sender: FDA-Public Use
  Company Number: FR-ELI_LILLY_AND_COMPANY-FR200703004867

PATIENT
  Age: 18 Year
  Sex: Female
  Weight: 46 kg

DRUGS (3)
  1. ZYPREXA [Suspect]
     Indication: HALLUCINATION
     Dosage: 5 MG, DAILY (1/D)
     Route: 048
     Dates: start: 20070219, end: 20070220
  2. SEROPLEX [Concomitant]
     Route: 048
     Dates: start: 20070206, end: 20070222
  3. AUGMENTIN /00756801/ [Concomitant]
     Indication: ACUTE SINUSITIS
     Dosage: 1 G, 3/D
     Route: 048
     Dates: start: 20070217, end: 20070221

REACTIONS (1)
  - NEUTROPENIA [None]
